FAERS Safety Report 9994958 (Version 1)
Quarter: 2014Q1

REPORT INFORMATION
  Report Type: Spontaneous
  Country: US (occurrence: US)
  Receive Date: 20140311
  Receipt Date: 20140311
  Transmission Date: 20141002
  Serious: Yes (Other)
  Sender: FDA-Public Use
  Company Number: US-JNJFOC-20140300817

PATIENT
  Sex: Female

DRUGS (3)
  1. BENADRYL [Suspect]
     Indication: EYE PRURITUS
     Route: 048
     Dates: start: 20140224, end: 20140226
  2. BENADRYL [Suspect]
     Indication: RHINORRHOEA
     Route: 048
     Dates: start: 20140224, end: 20140226
  3. BENADRYL [Suspect]
     Indication: MULTIPLE ALLERGIES
     Route: 048
     Dates: start: 20140224, end: 20140226

REACTIONS (2)
  - Chest pain [Not Recovered/Not Resolved]
  - Vomiting [Unknown]
